FAERS Safety Report 22003710 (Version 3)
Quarter: 2024Q1

REPORT INFORMATION
  Report Type: Report from Study
  Country: GB (occurrence: GB)
  Receive Date: 20230217
  Receipt Date: 20240111
  Transmission Date: 20240410
  Serious: Yes (Other)
  Sender: FDA-Public Use
  Company Number: GB-002147023-NVSC2023GB031680

PATIENT
  Sex: Male

DRUGS (2)
  1. KESIMPTA [Suspect]
     Active Substance: OFATUMUMAB
     Indication: Multiple sclerosis
     Dosage: 20 MG, QW
     Route: 058
     Dates: start: 20230206
  2. KESIMPTA [Suspect]
     Active Substance: OFATUMUMAB
     Indication: Relapsing-remitting multiple sclerosis
     Dosage: 20 MG, QMO
     Route: 058
     Dates: start: 20230206

REACTIONS (6)
  - Depressed level of consciousness [Recovered/Resolved]
  - Body temperature increased [Recovered/Resolved]
  - Musculoskeletal disorder [Recovered/Resolved]
  - Feeling cold [Recovered/Resolved]
  - Constipation [Unknown]
  - Fall [Unknown]

NARRATIVE: CASE EVENT DATE: 20230206
